FAERS Safety Report 8481245-0 (Version None)
Quarter: 2012Q3

REPORT INFORMATION
  Report Type: 
  Country: None (occurrence: None)
  Receive Date: 20120702
  Receipt Date: 20120621
  Transmission Date: 20120928
  Serious: Yes (Other)
  Sender: FDA-Public Use
  Company Number: CA-JNJFOC-20120511524

PATIENT
  Sex: Female
  Weight: 95.7 kg

DRUGS (3)
  1. REMICADE [Suspect]
     Indication: CROHN'S DISEASE
     Route: 042
     Dates: start: 20110501
  2. CETIRIZINE HCL [Concomitant]
     Route: 065
  3. TOPAMAX [Concomitant]
     Route: 065

REACTIONS (4)
  - MATERNAL EXPOSURE DURING PREGNANCY [None]
  - PHLEBITIS [None]
  - CROHN'S DISEASE [None]
  - THERAPEUTIC PROCEDURE [None]
